FAERS Safety Report 10036391 (Version 5)
Quarter: 2015Q2

REPORT INFORMATION
  Report Type: Report from Study
  Country: US (occurrence: US)
  Receive Date: 20140325
  Receipt Date: 20150601
  Transmission Date: 20150821
  Serious: Yes (Life-Threatening, Hospitalization, Other)
  Sender: FDA-Public Use
  Company Number: PHHY2014US022291

PATIENT
  Age: 23 Year
  Sex: Male

DRUGS (4)
  1. NO TREATMENT RECEIVED [Suspect]
     Active Substance: UNSPECIFIED INGREDIENT
     Indication: PRODUCT USED FOR UNKNOWN INDICATION
     Route: 065
  2. GABLOFEN [Suspect]
     Active Substance: BACLOFEN
     Indication: MUSCLE SPASTICITY
     Dosage: 350 UG, QD
     Route: 037
     Dates: start: 20070108, end: 20140202
  3. LAMOTRIGINE. [Suspect]
     Active Substance: LAMOTRIGINE
     Indication: PRODUCT USED FOR UNKNOWN INDICATION
     Route: 048
  4. PREVACID [Suspect]
     Active Substance: LANSOPRAZOLE
     Indication: PRODUCT USED FOR UNKNOWN INDICATION
     Route: 048

REACTIONS (14)
  - Implant site vesicles [Not Recovered/Not Resolved]
  - Laboratory test abnormal [Unknown]
  - Wound [Not Recovered/Not Resolved]
  - Implant site erythema [Unknown]
  - Wound secretion [Not Recovered/Not Resolved]
  - Abdominal distension [Unknown]
  - C-reactive protein abnormal [Unknown]
  - Skin discolouration [Unknown]
  - Capillary disorder [Unknown]
  - Full blood count abnormal [Unknown]
  - Implant site infection [Unknown]
  - Staphylococcal infection [Recovered/Resolved]
  - Contusion [Unknown]
  - Implant site erosion [Unknown]

NARRATIVE: CASE EVENT DATE: 20140113
